FAERS Safety Report 7496646-7 (Version None)
Quarter: 2011Q2

REPORT INFORMATION
  Report Type: 
  Country: None (occurrence: None)
  Receive Date: 20110523
  Receipt Date: 20110211
  Transmission Date: 20111010
  Serious: Yes (Hospitalization)
  Sender: FDA-Public Use
  Company Number: A0913515A

PATIENT
  Age: 38 Year
  Sex: Female

DRUGS (2)
  1. AVANDARYL [Suspect]
     Indication: DIABETES MELLITUS
     Route: 048
     Dates: start: 20060101, end: 20070101
  2. AVANDIA [Suspect]
     Indication: DIABETES MELLITUS
     Dosage: 4MG PER DAY
     Route: 048
     Dates: start: 20020101, end: 20050101

REACTIONS (2)
  - CARDIAC DISORDER [None]
  - CARDIOVASCULAR DISORDER [None]
